FAERS Safety Report 4524841-5 (Version None)
Quarter: 2004Q4

REPORT INFORMATION
  Report Type: 
  Country: None (occurrence: None)
  Receive Date: 20041213
  Receipt Date: 20041103
  Transmission Date: 20050328
  Serious: Yes (Hospitalization)
  Sender: FDA-Public Use
  Company Number: DE-BRISTOL-MYERS SQUIBB COMPANY-12755302

PATIENT
  Age: 66 Year
  Sex: Male
  Weight: 89 kg

DRUGS (7)
  1. CISPLATIN [Suspect]
     Indication: BRONCHIAL CARCINOMA
     Dosage: CYCLE 1: 03-AUG-2004
     Dates: start: 20041026, end: 20041026
  2. GEMCITABINE [Suspect]
     Indication: BRONCHIAL CARCINOMA
     Dosage: CYCLE 1: 03-AUG-2004
     Dates: start: 20041026, end: 20041026
  3. VINORELBINE [Suspect]
     Indication: BRONCHIAL CARCINOMA
     Dosage: CYCLE 1: 03-AUG-2004
     Dates: start: 20041026, end: 20041026
  4. GRANISETRON [Concomitant]
     Indication: VOMITING
     Dates: start: 20041026, end: 20041026
  5. PANTOPRAZOLE [Concomitant]
     Indication: PROPHYLAXIS
     Dosage: FOR GASTRIC PROTECTION
     Dates: start: 20040601
  6. DICLOFENAC+CHOLESTYRAMINE [Concomitant]
     Indication: PAIN
     Dates: start: 20040601, end: 20041001
  7. SALMETEROL XINAFOATE [Concomitant]
     Indication: CHRONIC OBSTRUCTIVE AIRWAYS DISEASE
     Dates: start: 20040601, end: 20041001

REACTIONS (6)
  - ANAEMIA [None]
  - DEHYDRATION [None]
  - DIZZINESS [None]
  - FEBRILE NEUTROPENIA [None]
  - THROMBOCYTOPENIA [None]
  - VOMITING [None]
